FAERS Safety Report 10105751 (Version 2)
Quarter: 2014Q2

REPORT INFORMATION
  Report Type: Other
  Country: US (occurrence: US)
  Receive Date: 20140424
  Receipt Date: 20140625
  Transmission Date: 20141212
  Serious: Yes (Hospitalization, Other)
  Sender: FDA-Public Use
  Company Number: US-GSKPPD-2014GSK001095

PATIENT
  Age: 47 Year
  Sex: Male

DRUGS (5)
  1. AVANDIA [Suspect]
     Indication: DIABETES MELLITUS
     Route: 048
     Dates: start: 2005, end: 2011
  2. SIMVASTATIN [Concomitant]
  3. METOPROLOL ER [Concomitant]
     Route: 048
  4. CALCIUM ACETATE [Concomitant]
     Route: 048
     Dates: end: 2010
  5. NEPHRO-VITE [Concomitant]
     Route: 048
     Dates: end: 2010

REACTIONS (2)
  - Myocardial infarction [None]
  - Coronary artery disease [Recovered/Resolved]
